FAERS Safety Report 6959546-4 (Version None)
Quarter: 2010Q3

REPORT INFORMATION
  Report Type: 
  Country: None (occurrence: None)
  Receive Date: 20100827
  Receipt Date: 20100819
  Transmission Date: 20110219
  Serious: Yes (Other)
  Sender: FDA-Public Use
  Company Number: 015134

PATIENT
  Sex: Male
  Weight: 73 kg

DRUGS (1)
  1. KEPPRA [Suspect]
     Indication: EPILEPSY
     Dosage: 500 MG BID
     Dates: start: 20030102

REACTIONS (2)
  - DUPUYTREN'S CONTRACTURE [None]
  - PANCREATITIS [None]
